FAERS Safety Report 6836758-1 (Version None)
Quarter: 2010Q3

REPORT INFORMATION
  Report Type: 
  Country: None (occurrence: None)
  Receive Date: 20100708
  Receipt Date: 20100708
  Transmission Date: 20110219
  Serious: Yes (Other)
  Sender: FDA-Public Use
  Company Number: 1022556-2010-00042

PATIENT
  Age: 19 Year
  Sex: Female

DRUGS (1)
  1. GOLD BOND PAIN RELIEVING FOOT CREAM 4OZ [Suspect]
     Dosage: TOPICAL ONCE
     Route: 061

REACTIONS (3)
  - OFF LABEL USE [None]
  - VULVOVAGINAL DISCOMFORT [None]
  - VULVOVAGINAL PAIN [None]
